FAERS Safety Report 10593122 (Version 1)
Quarter: 2014Q4

REPORT INFORMATION
  Report Type: Spontaneous
  Country: US (occurrence: None)
  Receive Date: 20141118
  Receipt Date: 20141118
  Transmission Date: 20150529
  Serious: Yes (Life-Threatening)
  Sender: FDA-Public Use
  Company Number: None

PATIENT
  Age: 83 Year
  Sex: Female
  Weight: 111.13 kg

DRUGS (2)
  1. NATURE MADE DIABERTES HEALTH PACK VITAMINS [Concomitant]
     Active Substance: VITAMINS
  2. ARNICARE [Suspect]
     Active Substance: ARNICA MONTANA
     Indication: CONTUSION
     Dosage: APPLIED BY FINGER, OVER TIME OF 1 WEEK
     Dates: start: 2012

REACTIONS (10)
  - Fall [None]
  - Seizure [None]
  - Splenic injury [None]
  - Wrong technique in drug usage process [None]
  - Contusion [None]
  - Transient ischaemic attack [None]
  - Cardiac arrest [None]
  - Local swelling [None]
  - Head injury [None]
  - Wound haemorrhage [None]

NARRATIVE: CASE EVENT DATE: 20141003
